FAERS Safety Report 5884622-7 (Version None)
Quarter: 2008Q3

REPORT INFORMATION
  Report Type: 
  Country: None (occurrence: None)
  Receive Date: 20080911
  Receipt Date: 20080908
  Transmission Date: 20090109
  Serious: Yes (Hospitalization)
  Sender: FDA-Public Use
  Company Number: 2008SP018026

PATIENT
  Age: 43 Year
  Sex: Male
  Weight: 51 kg

DRUGS (9)
  1. PEG-INTRON [Suspect]
     Indication: HEPATITIS C
     Dosage: 80 MCG; QW; SC; 60 MCG; QW; SC
     Route: 058
     Dates: start: 20071102, end: 20071102
  2. PEG-INTRON [Suspect]
     Indication: HEPATITIS C
     Dosage: 80 MCG; QW; SC; 60 MCG; QW; SC
     Route: 058
     Dates: start: 20071109, end: 20071221
  3. REBETOL [Suspect]
     Indication: HEPATITIS C
     Dosage: 600 MG; QD; PO
     Route: 048
     Dates: start: 20071102, end: 20071221
  4. SALAZOPYRIN [Concomitant]
  5. URSO 250 [Concomitant]
  6. MARZULENE S [Concomitant]
  7. GASCON [Concomitant]
  8. PRIMPERAN TAB [Concomitant]
  9. LOXONIN [Concomitant]

REACTIONS (6)
  - CHORIORETINITIS [None]
  - COLITIS ULCERATIVE [None]
  - CONDITION AGGRAVATED [None]
  - NO THERAPEUTIC RESPONSE [None]
  - RETINAL DETACHMENT [None]
  - VOGT-KOYANAGI-HARADA SYNDROME [None]
